FAERS Safety Report 8144366-8 (Version None)
Quarter: 2012Q1

REPORT INFORMATION
  Report Type: 
  Country: None (occurrence: None)
  Receive Date: 20120217
  Receipt Date: 20120210
  Transmission Date: 20120608
  Serious: Yes (Hospitalization)
  Sender: FDA-Public Use
  Company Number: AU-ROCHE-1039683

PATIENT
  Age: 44 Year
  Sex: Female
  Weight: 80.4 kg

DRUGS (1)
  1. VEMURAFENIB [Suspect]
     Indication: MALIGNANT MELANOMA
     Dosage: LAST DOSE PRIOR TO SAE 06/FEB/2012
     Route: 048
     Dates: start: 20111216

REACTIONS (3)
  - DIARRHOEA [None]
  - NAUSEA [None]
  - DEHYDRATION [None]
